FAERS Safety Report 21447295 (Version 2)
Quarter: 2022Q4

REPORT INFORMATION
  Report Type: Spontaneous
  Country: US (occurrence: US)
  Receive Date: 20221012
  Receipt Date: 20221018
  Transmission Date: 20230112
  Serious: Yes (Death, Life-Threatening, Hospitalization, Other)
  Sender: FDA-Public Use
  Company Number: US-SA-2022SA414389

PATIENT
  Age: 63 Year
  Sex: Female

DRUGS (2)
  1. SARILUMAB [Suspect]
     Active Substance: SARILUMAB
     Indication: Rheumatoid arthritis
     Dosage: UNK
  2. PREDNISONE [Suspect]
     Active Substance: PREDNISONE
     Indication: Rheumatoid arthritis
     Dosage: UNK

REACTIONS (14)
  - Multiple organ dysfunction syndrome [Fatal]
  - Septic shock [Fatal]
  - Staphylococcal bacteraemia [Fatal]
  - Purulent pericarditis [Fatal]
  - Pericardial effusion [Fatal]
  - Cardiac tamponade [Fatal]
  - Dyspnoea [Fatal]
  - Haemodynamic instability [Fatal]
  - Hypoxia [Fatal]
  - Staphylococcal infection [Fatal]
  - Joint swelling [Fatal]
  - Arthralgia [Fatal]
  - Febrile infection [Fatal]
  - Localised infection [Fatal]
